FAERS Safety Report 5338914-0 (Version None)
Quarter: 2007Q2

REPORT INFORMATION
  Report Type: 
  Country: None (occurrence: None)
  Receive Date: 20070404
  Receipt Date: 20060426
  Transmission Date: 20071010
  Serious: Yes (Other)
  Sender: FDA-Public Use
  Company Number: HQWYE034428APR06

PATIENT
  Age: 50 Year
  Sex: Female
  Weight: 56.75 kg

DRUGS (1)
  1. ALAVERT [Suspect]
     Indication: HYPERSENSITIVITY
     Dosage: 1 TABLET X 1, ORAL
     Route: 048
     Dates: start: 20060425, end: 20060425

REACTIONS (4)
  - ANXIETY [None]
  - DRY MOUTH [None]
  - EUPHORIC MOOD [None]
  - FEELING ABNORMAL [None]
